FAERS Safety Report 23288406 (Version 1)
Quarter: 2023Q4

REPORT INFORMATION
  Report Type: Report from Study
  Country: AR (occurrence: AR)
  Receive Date: 20231212
  Receipt Date: 20231212
  Transmission Date: 20240109
  Serious: Yes (Life-Threatening, Other)
  Sender: FDA-Public Use
  Company Number: AR-PFIZER INC-202300434506

PATIENT
  Age: 69 Year
  Sex: Female

DRUGS (5)
  1. RITUXIMAB [Suspect]
     Active Substance: RITUXIMAB
     Indication: Follicular lymphoma
     Dosage: UNK
  2. CYCLOPHOSPHAMIDE [Concomitant]
     Active Substance: CYCLOPHOSPHAMIDE
     Indication: Follicular lymphoma
     Dosage: UNK
  3. DOXORUBICIN [Concomitant]
     Active Substance: DOXORUBICIN
     Indication: Follicular lymphoma
     Dosage: UNK
  4. VINCRISTINE [Concomitant]
     Active Substance: VINCRISTINE
     Indication: Follicular lymphoma
     Dosage: UNK
  5. PREDNISONE [Concomitant]
     Active Substance: PREDNISONE
     Indication: Follicular lymphoma
     Dosage: UNK

REACTIONS (1)
  - Interstitial lung disease [Recovering/Resolving]
